FAERS Safety Report 5093835-6 (Version None)
Quarter: 2006Q3

REPORT INFORMATION
  Report Type: 
  Country: None (occurrence: None)
  Receive Date: 20060728
  Receipt Date: 20060508
  Transmission Date: 20061208
  Serious: No
  Sender: FDA-Public Use
  Company Number: 253031

PATIENT
  Age: 80 Year
  Sex: Female
  Weight: 70.7 kg

DRUGS (4)
  1. LEVEMIR [Suspect]
     Indication: INSULIN-REQUIRING TYPE II DIABETES MELLITUS
     Dosage: SEE IMAGE
     Route: 058
     Dates: start: 20060401, end: 20060401
  2. LEVEMIR [Suspect]
     Indication: INSULIN-REQUIRING TYPE II DIABETES MELLITUS
     Dosage: SEE IMAGE
     Route: 058
     Dates: start: 20060401
  3. . [Concomitant]
  4. NOVOLOG PENFILL (INSULIN ASPART) SOLUTION FOR INJECTION [Concomitant]

REACTIONS (1)
  - BLOOD GLUCOSE INCREASED [None]
